FAERS Safety Report 5582402-3 (Version None)
Quarter: 2007Q4

REPORT INFORMATION
  Report Type: 
  Country: None (occurrence: None)
  Receive Date: 20071130
  Receipt Date: 20061101
  Transmission Date: 20080405
  Serious: Yes (Hospitalization)
  Sender: FDA-Public Use
  Company Number: BDI-008781

PATIENT
  Age: 54 Year
  Sex: Male

DRUGS (1)
  1. ISOVUE-370 [Suspect]
     Indication: ARTERIOGRAM CORONARY
     Dosage: 80 ML ONCE IV
     Route: 042
     Dates: start: 20061020, end: 20061020

REACTIONS (1)
  - ANAPHYLACTIC SHOCK [None]
